FAERS Safety Report 17846886 (Version 4)
Quarter: 2020Q3

REPORT INFORMATION
  Report Type: Spontaneous
  Country: US (occurrence: US)
  Receive Date: 20200601
  Receipt Date: 20200702
  Transmission Date: 20201103
  Serious: Yes (Other)
  Sender: FDA-Public Use
  Company Number: US-PFIZER INC-2020211553

PATIENT
  Age: 71 Year
  Sex: Male
  Weight: 113.4 kg

DRUGS (2)
  1. LATANOPROST. [Interacting]
     Active Substance: LATANOPROST
     Dosage: UNK
  2. LATANOPROST. [Suspect]
     Active Substance: LATANOPROST
     Indication: INTRAOCULAR PRESSURE INCREASED
     Dosage: ONE DROP EACH EYE IN THE EVENING ONCE DAILY BEFORE BED
     Route: 047
     Dates: start: 201907

REACTIONS (4)
  - VIth nerve paralysis [Not Recovered/Not Resolved]
  - IIIrd nerve paralysis [Not Recovered/Not Resolved]
  - Diplopia [Not Recovered/Not Resolved]
  - Drug interaction [Not Recovered/Not Resolved]

NARRATIVE: CASE EVENT DATE: 201907
